FAERS Safety Report 8201436-3 (Version None)
Quarter: 2012Q1

REPORT INFORMATION
  Report Type: 
  Country: None (occurrence: None)
  Receive Date: 20120312
  Receipt Date: 20120306
  Transmission Date: 20120608
  Serious: Yes (Death)
  Sender: FDA-Public Use
  Company Number: TW-CELGENEUS-153-CCAZA-12030474

PATIENT
  Sex: Male
  Weight: 53.5 kg

DRUGS (85)
  1. MESYREL [Concomitant]
     Route: 048
     Dates: start: 20120129, end: 20120130
  2. AMINOL-V [Concomitant]
     Route: 041
     Dates: start: 20120220, end: 20120223
  3. COLISTIN SULFATE [Concomitant]
     Route: 065
     Dates: start: 20120205, end: 20120213
  4. SOLU-CORTEF [Concomitant]
     Dosage: 100 MILLIGRAM
     Route: 041
     Dates: start: 20120211, end: 20120212
  5. SOLU-CORTEF [Concomitant]
     Dosage: 100 MILLIGRAM
     Route: 041
     Dates: start: 20120214, end: 20120215
  6. SOLU-CORTEF [Concomitant]
     Dosage: 100 MILLIGRAM
     Route: 041
     Dates: start: 20120219, end: 20120221
  7. TRANSAMINE CAP [Concomitant]
     Dosage: 2 AMP
     Route: 041
     Dates: start: 20120218, end: 20120223
  8. LIPOVENOES [Concomitant]
     Dosage: 1 BOT
     Route: 041
     Dates: start: 20120214, end: 20120214
  9. DOXABEN [Concomitant]
     Dosage: 2 MILLIGRAM
     Route: 048
     Dates: start: 20120123, end: 20120124
  10. CODEINE PHOSPHATE [Concomitant]
     Dosage: 60 MILLIGRAM
     Route: 048
     Dates: start: 20120130, end: 20120206
  11. ASTOMIN [Concomitant]
     Dosage: 10 MILLIGRAM
     Route: 048
     Dates: start: 20120123, end: 20120124
  12. DEXTROSE [Concomitant]
     Dosage: 1000 CC
     Route: 041
     Dates: start: 20120130, end: 20120212
  13. NYSTATIN [Concomitant]
     Dosage: 1 CAP
     Route: 048
     Dates: start: 20120130, end: 20120223
  14. SODIUM CHLORIDE [Concomitant]
     Dosage: 500 CC
     Route: 041
     Dates: start: 20120216, end: 20120217
  15. SEROQUEL [Concomitant]
     Dosage: 25 MILLIGRAM
     Route: 048
     Dates: start: 20120131, end: 20120212
  16. SENOKOT [Concomitant]
     Dosage: 15 MILLIGRAM
     Route: 048
     Dates: start: 20120212, end: 20120215
  17. NEXIUM [Concomitant]
     Route: 041
     Dates: start: 20120201, end: 20120202
  18. NEXIUM [Concomitant]
     Route: 041
     Dates: start: 20120201, end: 20120203
  19. POTASSIUM CHLORIDE [Concomitant]
     Dosage: 20 CC
     Route: 041
     Dates: start: 20120217, end: 20120218
  20. ALLEGRA [Concomitant]
     Route: 048
     Dates: start: 20120208, end: 20120218
  21. FLUR DI FEN [Concomitant]
     Dosage: X4
     Route: 065
     Dates: start: 20120210, end: 20120217
  22. NEOMYCIN [Concomitant]
     Dosage: X1 TUB
     Route: 065
     Dates: start: 20120212, end: 20120223
  23. BININ-U [Concomitant]
     Dosage: 0.5 TAB
     Route: 048
     Dates: start: 20120216, end: 20120223
  24. ZINC OXIDE [Concomitant]
     Dosage: X1 TUB
     Dates: start: 20120216, end: 20120223
  25. VITAGEN [Concomitant]
     Dosage: 250CC
     Route: 041
     Dates: start: 20120222, end: 20120222
  26. ALLERMIN [Concomitant]
     Dosage: 1 AMP
     Route: 041
     Dates: start: 20120122, end: 20120223
  27. DOXABEN [Concomitant]
     Dosage: 2 MILLIGRAM
     Route: 048
     Dates: start: 20120130, end: 20120212
  28. CODEINE PHOSPHATE [Concomitant]
     Dosage: 30 MILLIGRAM
     Route: 048
     Dates: start: 20120206, end: 20120212
  29. ASTOMIN [Concomitant]
     Dosage: 10 MILLIGRAM
     Route: 048
     Dates: start: 20120206, end: 20120207
  30. LEVOFLOXACIN [Concomitant]
     Dosage: 750 MILLIGRAM
     Route: 041
     Dates: start: 20120127, end: 20120210
  31. MYCAMINE [Concomitant]
     Dosage: 100 MILLIGRAM
     Route: 041
     Dates: start: 20120130, end: 20120213
  32. NEXIUM [Concomitant]
     Dosage: 1 TAB
     Route: 048
     Dates: start: 20120204, end: 20120215
  33. AMINOL-V [Concomitant]
     Route: 041
     Dates: start: 20120204, end: 20120207
  34. LASIX [Concomitant]
     Dosage: 1 AMP/20MG/2ML
     Route: 041
     Dates: start: 20120206, end: 20120207
  35. LASIX [Concomitant]
     Dosage: 1 AMP/20MG/2ML
     Route: 041
     Dates: start: 20120214, end: 20120215
  36. LASIX [Concomitant]
     Dosage: 1 AMP/20MG/2ML
     Route: 041
     Dates: start: 20120222, end: 20120223
  37. ALBUMIN (HUMAN) [Concomitant]
     Dosage: 1 BOTTLE
     Route: 041
     Dates: start: 20120207, end: 20120210
  38. SOLU-CORTEF [Concomitant]
     Dosage: 100 MILLIGRAM
     Route: 041
     Dates: start: 20120215, end: 20120216
  39. LIPOVENOES [Concomitant]
     Dosage: 1 BOT
     Route: 041
     Dates: start: 20120214, end: 20120220
  40. DEPYRETIN [Concomitant]
     Dosage: 1 TAB
     Route: 048
     Dates: start: 20120219, end: 20120223
  41. CODEINE PHOSPHATE [Concomitant]
     Dosage: 30 MILLIGRAM
     Route: 048
     Dates: start: 20120212, end: 20120214
  42. TRAMADOL HYDROCHLORIDE [Concomitant]
     Dosage: 0.5 AMP
     Route: 041
     Dates: start: 20120124, end: 20120206
  43. NEXIUM [Concomitant]
     Dosage: 1 TAB
     Route: 048
     Dates: start: 20120204, end: 20120205
  44. LASIX [Concomitant]
     Dosage: 1 AMP/20MG/2ML
     Route: 041
     Dates: start: 20120204, end: 20120205
  45. LASIX [Concomitant]
     Dosage: 0.5 AMP/20MG/2ML
     Route: 041
     Dates: start: 20120220, end: 20120221
  46. HEPAN [Concomitant]
     Dosage: 0.5 TAB
     Route: 048
     Dates: start: 20120204, end: 20120212
  47. SOLU-CORTEF [Concomitant]
     Dosage: 100 MILLIGRAM
     Route: 041
     Dates: start: 20120222, end: 20120223
  48. MORPHINE [Concomitant]
     Dosage: 10 MILLIGRAM
     Route: 041
     Dates: start: 20120222, end: 20120223
  49. LEVOPHED [Concomitant]
     Dosage: 2 AMP
     Route: 041
     Dates: start: 20120222, end: 20120223
  50. DOPAMINE HYDROCHLORIDE [Concomitant]
     Dosage: 400 MILLIGRAM
     Route: 041
     Dates: start: 20120223, end: 20120223
  51. AZACITIDINE [Suspect]
     Dosage: 75 MILLIGRAM/SQ. METER
     Route: 058
     Dates: start: 20111216, end: 20111222
  52. LIPOFUNDIN MCT/LCT [Concomitant]
     Dosage: 1 BOT
     Route: 041
     Dates: start: 20120124, end: 20120203
  53. LEVOFLOXACIN [Concomitant]
     Dosage: 500 MILLIGRAM
     Route: 041
     Dates: start: 20120213, end: 20120214
  54. SODIUM CHLORIDE [Concomitant]
     Dosage: 500 CC
     Route: 041
     Dates: start: 20120130, end: 20120131
  55. SODIUM CHLORIDE [Concomitant]
     Dosage: 500 CC
     Route: 041
     Dates: start: 20120217, end: 20120218
  56. MEPAM [Concomitant]
     Dosage: 1000 MILLIGRAM
     Route: 041
     Dates: start: 20120130, end: 20120213
  57. SENOKOT [Concomitant]
     Dosage: 15 MILLIGRAM
     Route: 048
     Dates: start: 20120131, end: 20120212
  58. POTASSIUM CHLORIDE [Concomitant]
     Dosage: 10 CC
     Route: 041
     Dates: start: 20120201, end: 20120202
  59. POTASSIUM CHLORIDE [Concomitant]
     Dosage: 20 CC
     Route: 041
     Dates: start: 20120201, end: 20120203
  60. POTASSIUM CHLORIDE [Concomitant]
     Dosage: 20 CC
     Route: 041
     Dates: start: 20120217, end: 20120220
  61. POTASSIUM CHLORIDE [Concomitant]
     Dosage: 20 CC
     Route: 041
     Dates: start: 20120220, end: 20120220
  62. DISOLIN [Concomitant]
     Dosage: 0.5 AMP
     Route: 041
     Dates: start: 20120216, end: 20120223
  63. SOLU-MEDROL [Concomitant]
     Dosage: 125 MILLIGRAM
     Route: 041
     Dates: start: 20120222, end: 20120223
  64. AZACITIDINE [Suspect]
     Dosage: 50 MILLIGRAM/SQ. METER
     Route: 058
     Dates: start: 20120206, end: 20120212
  65. CODEINE PHOSPHATE [Concomitant]
     Dosage: 60 MILLIGRAM
     Route: 048
     Dates: start: 20120123, end: 20120124
  66. ASTOMIN [Concomitant]
     Dosage: 10 MILLIGRAM
     Route: 048
     Dates: start: 20120127, end: 20120210
  67. LEVOFLOXACIN [Concomitant]
     Dosage: 500 MILLIGRAM
     Route: 041
     Dates: start: 20120213, end: 20120223
  68. COLISTIN SULFATE [Concomitant]
     Route: 065
     Dates: start: 20120205, end: 20120206
  69. SOLU-CORTEF [Concomitant]
     Dosage: 100 MILLIGRAM
     Route: 041
     Dates: start: 20120211, end: 20120213
  70. EPINEPHRINE [Concomitant]
     Dosage: 1 AMP
     Route: 065
     Dates: start: 20120213, end: 20120223
  71. PONCOLIN [Concomitant]
     Dosage: X1 BOT
     Route: 048
     Dates: start: 20120217, end: 20120218
  72. VITAGEN [Concomitant]
     Dosage: 250CC
     Route: 041
     Dates: start: 20120222, end: 20120223
  73. DOXABEN [Concomitant]
     Dosage: 2 MILLIGRAM
     Route: 048
     Dates: start: 20120206, end: 20120207
  74. LEVOFLOXACIN [Concomitant]
     Dosage: 750 MILLIGRAM
     Route: 041
     Dates: start: 20120127, end: 20120128
  75. SOLU-CORTEF [Concomitant]
     Dosage: 50 MILLIGRAM
     Route: 041
     Dates: start: 20120216, end: 20120217
  76. SOLU-CORTEF [Concomitant]
     Dosage: 100 MILLIGRAM
     Route: 041
     Dates: start: 20120221, end: 20120222
  77. TRANSAMINE CAP [Concomitant]
     Dosage: 1 AMP
     Route: 041
     Dates: start: 20120213, end: 20120218
  78. TYGACIL [Concomitant]
     Dosage: 100 MILLIGRAM
     Route: 041
     Dates: start: 20120213, end: 20120214
  79. KATIMIN [Concomitant]
     Dosage: 1 AMP
     Route: 041
     Dates: start: 20120214, end: 20120215
  80. MEGEST [Concomitant]
     Dosage: X1 BOT
     Route: 048
     Dates: start: 20120218, end: 20120219
  81. COMBIVENT [Concomitant]
     Dosage: 1 VIAL
     Route: 030
     Dates: start: 20120222, end: 20120222
  82. CODEINE PHOSPHATE [Concomitant]
     Dosage: 30 MILLIGRAM
     Route: 048
     Dates: start: 20120206, end: 20120207
  83. SEROQUEL [Concomitant]
     Dosage: 0.5
     Route: 048
     Dates: start: 20120130, end: 20120131
  84. TRANSAMINE CAP [Concomitant]
     Dosage: 1 AMP
     Route: 041
     Dates: start: 20120214, end: 20120215
  85. TYGACIL [Concomitant]
     Route: 041
     Dates: start: 20120213, end: 20120223

REACTIONS (1)
  - PNEUMONIA [None]
